FAERS Safety Report 6613197-X (Version None)
Quarter: 2010Q1

REPORT INFORMATION
  Report Type: 
  Country: None (occurrence: None)
  Receive Date: 20100304
  Receipt Date: 20100219
  Transmission Date: 20100710
  Serious: Yes (Hospitalization)
  Sender: FDA-Public Use
  Company Number: SK-ELI_LILLY_AND_COMPANY-SK201002006929

PATIENT
  Sex: Male
  Weight: 82 kg

DRUGS (3)
  1. GEMCITABINE HCL [Suspect]
     Indication: NON-SMALL CELL LUNG CANCER
     Dosage: 59.523 MG/M2, ONCE EVERY THREE WEEKS
     Route: 042
     Dates: start: 20090219
  2. CETUXIMAB [Suspect]
     Indication: NON-SMALL CELL LUNG CANCER
     Dosage: 35.714 MG/M2, WEEKLY (1/W)
     Route: 042
     Dates: start: 20090219
  3. CISPLATIN [Suspect]
     Indication: NON-SMALL CELL LUNG CANCER
     Dosage: 3.571 MG/M2, ONCE EVERY THREE WEEKS
     Route: 042
     Dates: start: 20090219

REACTIONS (1)
  - EPISTAXIS [None]
